FAERS Safety Report 8268149 (Version 4)
Quarter: 2014Q4

REPORT INFORMATION
  Report Type: Spontaneous
  Country: US (occurrence: US)
  Receive Date: 20111130
  Receipt Date: 20141126
  Transmission Date: 20150529
  Serious: Yes (Life-Threatening, Hospitalization, Other)
  Sender: FDA-Public Use
  Company Number: US-US-EMD SERONO, INC.-7097408

PATIENT
  Sex: Female

DRUGS (2)
  1. REBIF [Suspect]
     Active Substance: INTERFERON BETA-1A
     Route: 058
     Dates: start: 20111101
  2. REBIF [Suspect]
     Active Substance: INTERFERON BETA-1A
     Indication: MULTIPLE SCLEROSIS
     Route: 058
     Dates: start: 20090325, end: 201108

REACTIONS (12)
  - Memory impairment [Unknown]
  - Pancreatic injury [Recovered/Resolved]
  - Pancreatitis [Recovered/Resolved]
  - Injection site erythema [Not Recovered/Not Resolved]
  - Cholelithiasis [Recovered/Resolved]
  - Postoperative fever [Unknown]
  - Migraine [Not Recovered/Not Resolved]
  - Staring [Not Recovered/Not Resolved]
  - Seizure [Unknown]
  - Alopecia [Not Recovered/Not Resolved]
  - Pneumonia [Recovered/Resolved]
  - Pulmonary oedema [Unknown]

NARRATIVE: CASE EVENT DATE: 2011
